APPROVED DRUG PRODUCT: TRIAMCINOLONE ACETONIDE
Active Ingredient: TRIAMCINOLONE ACETONIDE
Strength: 0.05%
Dosage Form/Route: OINTMENT;TOPICAL
Application: A212460 | Product #001 | TE Code: AT
Applicant: PADAGIS ISRAEL PHARMACEUTICALS LTD
Approved: Feb 5, 2021 | RLD: No | RS: No | Type: RX